FAERS Safety Report 9342713 (Version 1)
Quarter: 2013Q2

REPORT INFORMATION
  Report Type: Spontaneous
  Country: US (occurrence: None)
  Receive Date: 20130607
  Receipt Date: 20130607
  Transmission Date: 20140414
  Serious: No
  Sender: FDA-Public Use
  Company Number: LIT-13-0014-W

PATIENT
  Age: 57 Year
  Sex: Female

DRUGS (1)
  1. PHENYTOIN [Suspect]
     Indication: CONVULSION PROPHYLAXIS

REACTIONS (5)
  - Convulsion [None]
  - Anti-platelet antibody positive [None]
  - Platelet count decreased [None]
  - Drug interaction [None]
  - Drug hypersensitivity [None]
